FAERS Safety Report 5758144-8 (Version None)
Quarter: 2008Q2

REPORT INFORMATION
  Report Type: 
  Country: None (occurrence: None)
  Receive Date: 20080530
  Receipt Date: 20080511
  Transmission Date: 20081010
  Serious: Yes (Hospitalization)
  Sender: FDA-Public Use
  Company Number: 2008SP007641

PATIENT
  Age: 59 Year
  Sex: Male
  Weight: 89 kg

DRUGS (8)
  1. TEMOZOLOMIDE [Suspect]
     Indication: GLIOBLASTOMA MULTIFORME
     Dosage: 160 MG; QD; PO
     Route: 048
     Dates: start: 20080330, end: 20080511
  2. TEMOZOLOMIDE [Suspect]
  3. AMLODIPINE [Concomitant]
  4. ENALAPRIL MALEATE [Concomitant]
  5. DEXAMETHASONE TAB [Concomitant]
  6. GRANISETRON HCL [Concomitant]
  7. CEFUROXIME [Concomitant]
  8. METRONIDAZOLE HCL [Concomitant]

REACTIONS (7)
  - ATRIAL FIBRILLATION [None]
  - CHOLECYSTITIS [None]
  - LOSS OF CONSCIOUSNESS [None]
  - NAUSEA [None]
  - PALLOR [None]
  - RETCHING [None]
  - RETINAL DETACHMENT [None]
